FAERS Safety Report 20454789 (Version 1)
Quarter: 2022Q1

REPORT INFORMATION
  Report Type: Spontaneous
  Country: GT (occurrence: GT)
  Receive Date: 20220210
  Receipt Date: 20220210
  Transmission Date: 20220423
  Serious: Yes (Death)
  Sender: FDA-Public Use
  Company Number: GT-NOVARTISPH-NVSC2022GT028912

PATIENT
  Sex: Male

DRUGS (1)
  1. GLIVEC [Suspect]
     Active Substance: IMATINIB MESYLATE
     Indication: Chronic myeloid leukaemia
     Dosage: 400 MG (1X400MG TABLET)
     Route: 065

REACTIONS (3)
  - Ill-defined disorder [Fatal]
  - Peripheral swelling [Fatal]
  - Pulmonary oedema [Fatal]
